FAERS Safety Report 8144341-3 (Version None)
Quarter: 2012Q1

REPORT INFORMATION
  Report Type: 
  Country: None (occurrence: None)
  Receive Date: 20120217
  Receipt Date: 20120213
  Transmission Date: 20120608
  Serious: Yes (Hospitalization, Other)
  Sender: FDA-Public Use
  Company Number: DE-ROCHE-1027620

PATIENT
  Sex: Male
  Weight: 74 kg

DRUGS (14)
  1. FLUOROURACIL [Concomitant]
     Route: 042
     Dates: start: 20110101
  2. ASPIRIN [Concomitant]
     Indication: HYPERTENSION
  3. FOLIC ACID [Concomitant]
     Indication: RECTAL CANCER
     Dates: start: 20110101
  4. FLUOROURACIL [Concomitant]
     Route: 042
     Dates: start: 20110101
  5. ASPIRIN [Concomitant]
     Indication: TOBACCO ABUSE
  6. ASPIRIN [Concomitant]
     Indication: DIASTOLIC DYSFUNCTION
  7. SIMVASTATIN [Concomitant]
     Indication: DYSLIPIDAEMIA
     Dosage: 20-40 MG
  8. AVASTIN [Suspect]
     Indication: RECTAL CANCER RECURRENT
     Route: 042
     Dates: start: 20110101
  9. OXALIPLATIN [Concomitant]
     Indication: RECTAL CANCER
     Route: 042
     Dates: start: 20110101
  10. ASPIRIN [Concomitant]
     Indication: MITRAL VALVE INCOMPETENCE
     Route: 048
     Dates: start: 20101126
  11. FLUOROURACIL [Concomitant]
     Dates: start: 20041201, end: 20050301
  12. ASPIRIN [Concomitant]
     Indication: CORONARY ARTERY DISEASE
  13. RAMIPRIL [Concomitant]
     Indication: HYPERTENSION
  14. HYDROCHLOROTHIAZIDE [Concomitant]
     Indication: HYPERTENSION

REACTIONS (4)
  - ACUTE MYOCARDIAL INFARCTION [None]
  - DEHYDRATION [None]
  - CHRONIC OBSTRUCTIVE PULMONARY DISEASE [None]
  - RESPIRATORY TRACT INFECTION [None]
